FAERS Safety Report 16239747 (Version 1)
Quarter: 2019Q2

REPORT INFORMATION
  Report Type: Report from Study
  Country: US (occurrence: US)
  Receive Date: 20190425
  Receipt Date: 20190425
  Transmission Date: 20190711
  Serious: No
  Sender: FDA-Public Use
  Company Number: PHHY2017US088387

PATIENT
  Age: 63 Year
  Sex: Female

DRUGS (2)
  1. GILENYA [Suspect]
     Active Substance: FINGOLIMOD HYDROCHLORIDE
     Indication: MULTIPLE SCLEROSIS
     Dosage: UNK UNK, QD
     Route: 048
  2. VESICARE [Concomitant]
     Active Substance: SOLIFENACIN SUCCINATE
     Indication: INCONTINENCE
     Dosage: UNK
     Route: 065
     Dates: start: 20170210, end: 20170727

REACTIONS (6)
  - Amnesia [Unknown]
  - Vertigo [Unknown]
  - Nausea [Unknown]
  - Micturition urgency [Unknown]
  - Headache [Unknown]
  - Asthenia [Unknown]

NARRATIVE: CASE EVENT DATE: 20160210
